FAERS Safety Report 6521542-9 (Version None)
Quarter: 2009Q4

REPORT INFORMATION
  Report Type: 
  Country: None (occurrence: None)
  Receive Date: 20091224
  Receipt Date: 20091216
  Transmission Date: 20100525
  Serious: Yes (Other)
  Sender: FDA-Public Use
  Company Number: A-NJ2009-30986

PATIENT
  Age: 30 Year
  Sex: Female
  Weight: 89.3 kg

DRUGS (8)
  1. TRACLEER [Suspect]
     Indication: PULMONARY ARTERIAL HYPERTENSION
     Dosage: ORAL
     Route: 048
     Dates: start: 20080626, end: 20091111
  2. TRACLEER [Suspect]
     Indication: PULMONARY ARTERIAL HYPERTENSION
     Dosage: ORAL
     Route: 048
     Dates: start: 20091127, end: 20091216
  3. REMODULIN (TREPROSTINIL) [Concomitant]
  4. PROCARDIA [Concomitant]
  5. LOVENOX [Concomitant]
  6. LORTAB [Concomitant]
  7. PHENERGAN (PROMETHAZINE) [Concomitant]
  8. TRACLEER [Suspect]

REACTIONS (1)
  - PREGNANCY [None]
